FAERS Safety Report 4356989-2 (Version None)
Quarter: 2004Q2

REPORT INFORMATION
  Report Type: 
  Country: None (occurrence: None)
  Receive Date: 20040507
  Receipt Date: 20040423
  Transmission Date: 20050107
  Serious: Yes (Life-Threatening, Hospitalization)
  Sender: FDA-Public Use
  Company Number: 2004-0006911

PATIENT
  Age: 29 Year
  Sex: Female
  Weight: 33.1126 kg

DRUGS (9)
  1. VIREAD [Suspect]
     Indication: HIV INFECTION
     Dosage: 300 MG, 1 IN 1 D, ORAL
     Route: 048
     Dates: start: 20031030, end: 20040327
  2. KALETRA [Concomitant]
  3. VIDEX EC [Concomitant]
  4. OXANDRIN [Concomitant]
  5. PROTONIX [Concomitant]
  6. MEPRON LIQUID (ATOVAQUONE) [Concomitant]
  7. ZITHROMAX [Concomitant]
  8. PROCRIT (ERYTHROPOIETIN) [Concomitant]
  9. MARINOL [Concomitant]

REACTIONS (6)
  - ABDOMINAL PAIN [None]
  - BLOOD ALKALINE PHOSPHATASE INCREASED [None]
  - DEHYDRATION [None]
  - DIALYSIS [None]
  - MARKEDLY REDUCED DIETARY INTAKE [None]
  - RENAL FAILURE ACUTE [None]
